FAERS Safety Report 7144762-1 (Version None)
Quarter: 2010Q4

REPORT INFORMATION
  Report Type: 
  Country: None (occurrence: None)
  Receive Date: 20101112
  Receipt Date: 20100816
  Transmission Date: 20110411
  Serious: No
  Sender: FDA-Public Use
  Company Number: 1000015762

PATIENT
  Age: 70 Year
  Sex: Female

DRUGS (10)
  1. SAVELLA [Suspect]
     Indication: FIBROMYALGIA
     Dosage: 12.5 MG (12.5 MG, 1 IN 1 D), ORAL; 25 MG (12.5 MG, 2 IN 1 D), ORAL; 50 GM (25 MG, 2 IN 1 D), ORAL
     Route: 048
     Dates: start: 20100517, end: 20100517
  2. SAVELLA [Suspect]
     Indication: FIBROMYALGIA
     Dosage: 12.5 MG (12.5 MG, 1 IN 1 D), ORAL; 25 MG (12.5 MG, 2 IN 1 D), ORAL; 50 GM (25 MG, 2 IN 1 D), ORAL
     Route: 048
     Dates: start: 20100518, end: 20100519
  3. SAVELLA [Suspect]
     Indication: FIBROMYALGIA
     Dosage: 12.5 MG (12.5 MG, 1 IN 1 D), ORAL; 25 MG (12.5 MG, 2 IN 1 D), ORAL; 50 GM (25 MG, 2 IN 1 D), ORAL
     Route: 048
     Dates: start: 20100520, end: 20100523
  4. SAVELLA [Suspect]
     Indication: FIBROMYALGIA
     Dosage: 100 MG (50 MG, 2 IN 1 D), ORAL
     Route: 048
     Dates: start: 20100524, end: 20100812
  5. SAVELLA [Suspect]
     Indication: FIBROMYALGIA
     Dosage: 50 MG (50 MG, 1 IN 1 D), ORAL; 25 MG (25 MG, 1 IN 1 D), ORAL
     Route: 048
     Dates: start: 20100813, end: 20100815
  6. SAVELLA [Suspect]
     Indication: FIBROMYALGIA
     Dosage: 50 MG (50 MG, 1 IN 1 D), ORAL; 25 MG (25 MG, 1 IN 1 D), ORAL
     Route: 048
     Dates: start: 20100816
  7. MEDROL [Concomitant]
  8. ASPIRIN (81 MILLIGRAM, TABLETS) [Concomitant]
  9. AMBIEN (10 MILLIGRAM, TABLETS) [Concomitant]
  10. IBUPROFEN [Concomitant]

REACTIONS (6)
  - CHILLS [None]
  - DYSPNOEA [None]
  - HEART RATE INCREASED [None]
  - HYPERHIDROSIS [None]
  - PRURITUS [None]
  - TREMOR [None]
